FAERS Safety Report 4502385-4 (Version None)
Quarter: 2004Q4

REPORT INFORMATION
  Report Type: 
  Country: None (occurrence: None)
  Receive Date: 20041110
  Receipt Date: 20040927
  Transmission Date: 20050328
  Serious: Yes (Other)
  Sender: FDA-Public Use
  Company Number: S04-FRA-07293-01

PATIENT
  Age: 92 Year
  Sex: Female

DRUGS (4)
  1. EBIXA (MEMANTINE) [Suspect]
     Dosage: 10 MG QOD PO
     Route: 048
  2. LEVOTHYROXINE SODIUM [Concomitant]
  3. MIANSERIN [Concomitant]
  4. ASPIRIN [Concomitant]

REACTIONS (1)
  - PEMPHIGUS [None]
